FAERS Safety Report 5830573-3 (Version None)
Quarter: 2008Q3

REPORT INFORMATION
  Report Type: 
  Country: None (occurrence: None)
  Receive Date: 20080801
  Receipt Date: 20070725
  Transmission Date: 20090109
  Serious: No
  Sender: FDA-Public Use
  Company Number: US-BRISTOL-MYERS SQUIBB COMPANY-13857065

PATIENT
  Age: 67 Year
  Sex: Male
  Weight: 104 kg

DRUGS (1)
  1. COUMADIN [Suspect]
     Route: 048

REACTIONS (4)
  - ABDOMINAL DISTENSION [None]
  - FEELING HOT [None]
  - FLATULENCE [None]
  - HEADACHE [None]
